FAERS Safety Report 10568264 (Version 1)
Quarter: 2014Q4

REPORT INFORMATION
  Report Type: Spontaneous
  Country: US (occurrence: None)
  Receive Date: 20141105
  Receipt Date: 20141105
  Transmission Date: 20150529
  Serious: No
  Sender: FDA-Public Use
  Company Number: None

PATIENT
  Age: 76 Year
  Sex: Female

DRUGS (1)
  1. XELODA [Suspect]
     Active Substance: CAPECITABINE
     Indication: BREAST CANCER
     Dosage: 500 MG ORAL 047 BID
     Route: 048
     Dates: start: 20140906

REACTIONS (6)
  - Erythema [None]
  - Skin irritation [None]
  - Headache [None]
  - Pain in extremity [None]
  - Burning sensation [None]
  - Insomnia [None]

NARRATIVE: CASE EVENT DATE: 20141102
